FAERS Safety Report 15761668 (Version 5)
Quarter: 2019Q1

REPORT INFORMATION
  Report Type: Spontaneous
  Country: ES (occurrence: ES)
  Receive Date: 20181226
  Receipt Date: 20190127
  Transmission Date: 20190417
  Serious: Yes (Life-Threatening, Other)
  Sender: FDA-Public Use
  Company Number: PHHY2018ES195144

PATIENT
  Age: 49 Year
  Sex: Male

DRUGS (3)
  1. CASPOFUNGIN ACETATE. [Suspect]
     Active Substance: CASPOFUNGIN ACETATE
     Indication: PNEUMONIA
     Dosage: 50 MG, UNK (50 MILLIGRAM IN 5 ML OF PHYSIOLOGIC SALINE OVER 30 MINUTES)
     Route: 055
  2. SODIUM CHLORIDE. [Concomitant]
     Active Substance: SODIUM CHLORIDE
     Indication: CANDIDA INFECTION
     Dosage: UNK UKN, UNK
     Route: 065
  3. CASPOFUNGIN ACETATE. [Suspect]
     Active Substance: CASPOFUNGIN ACETATE
     Indication: CANDIDA PNEUMONIA
     Dosage: UNK
     Route: 042

REACTIONS (11)
  - Hypotension [Recovered/Resolved]
  - Oxygen saturation decreased [Recovered/Resolved]
  - Wrong technique in product usage process [Unknown]
  - Device failure [Unknown]
  - Drug resistance [Unknown]
  - Bradycardia [Recovered/Resolved]
  - Mechanical ventilation complication [Recovered/Resolved]
  - Off label use [Unknown]
  - Tachypnoea [Recovering/Resolving]
  - Intentional product use issue [Unknown]
  - Medication error [Unknown]
